FAERS Safety Report 9411713 (Version 1)
Quarter: 2013Q3

REPORT INFORMATION
  Report Type: Spontaneous
  Country: FR (occurrence: FR)
  Receive Date: 20130722
  Receipt Date: 20130722
  Transmission Date: 20140515
  Serious: Yes (Hospitalization)
  Sender: FDA-Public Use
  Company Number: FR-JNJFOC-20130709054

PATIENT
  Age: 62 Year
  Sex: Male

DRUGS (7)
  1. XARELTO [Suspect]
     Indication: CEREBROVASCULAR ACCIDENT PROPHYLAXIS
     Route: 048
     Dates: start: 201302, end: 20130605
  2. TRAMADOL [Concomitant]
     Route: 065
  3. AMIODARONE [Concomitant]
     Route: 048
     Dates: start: 201302
  4. POTASSIUM CHLORIDE [Concomitant]
     Route: 065
  5. BISOPROLOL [Concomitant]
     Route: 065
  6. COVERSYL [Concomitant]
     Route: 048
     Dates: start: 201302
  7. LASILIX [Concomitant]
     Route: 048
     Dates: start: 201302

REACTIONS (1)
  - Thrombocytopenia [Recovering/Resolving]
